FAERS Safety Report 23458507 (Version 3)
Quarter: 2024Q1

REPORT INFORMATION
  Report Type: Spontaneous
  Country: US (occurrence: US)
  Receive Date: 20240130
  Receipt Date: 20240315
  Transmission Date: 20240409
  Serious: No
  Sender: FDA-Public Use
  Company Number: US-DAIICHI SANKYO, INC.-DSU-2024-103864AA

PATIENT
  Age: 54 Year
  Sex: Female
  Weight: 86.2 kg

DRUGS (2)
  1. ENHERTU [Suspect]
     Active Substance: FAM-TRASTUZUMAB DERUXTECAN-NXKI
     Indication: Breast cancer female
     Dosage: 440 MG, ONCE EVERY 3 WK
     Route: 042
     Dates: start: 20230508, end: 20231115
  2. ENHERTU [Suspect]
     Active Substance: FAM-TRASTUZUMAB DERUXTECAN-NXKI
     Dosage: 440 MG, ONCE EVERY 3 WK
     Route: 042
     Dates: start: 20230508, end: 20231115

REACTIONS (3)
  - Intentional dose omission [Recovered/Resolved]
  - Treatment noncompliance [Unknown]
  - No adverse event [Unknown]

NARRATIVE: CASE EVENT DATE: 20240122
